FAERS Safety Report 7387551 (Version 2)
Quarter: 2013Q4

REPORT INFORMATION
  Report Type: Spontaneous
  Country: US (occurrence: US)
  Receive Date: 20100514
  Receipt Date: 20131114
  Transmission Date: 20140711
  Serious: No
  Sender: FDA-Public Use
  Company Number: US-BIOGENIDEC-2010BI015323

PATIENT
  Age: 38 Year
  Sex: Female

DRUGS (2)
  1. AVONEX [Suspect]
     Indication: MULTIPLE SCLEROSIS
     Route: 030
     Dates: start: 200109, end: 2003
  2. AVONEX [Suspect]
     Indication: MULTIPLE SCLEROSIS
     Route: 030
     Dates: start: 2003

REACTIONS (24)
  - Vision blurred [Recovered/Resolved]
  - Retching [Recovered/Resolved]
  - Fear of injection [Recovered/Resolved]
  - Multiple sclerosis [Unknown]
  - Cellulitis [Recovered/Resolved]
  - Dysphemia [Recovered/Resolved]
  - Stress at work [Recovered/Resolved]
  - Injection site haemorrhage [Recovered/Resolved]
  - Fear [Recovered/Resolved]
  - Injection site bruising [Recovered/Resolved]
  - Emotional disorder [Recovered/Resolved]
  - Headache [Unknown]
  - Localised infection [Recovered/Resolved]
  - Memory impairment [Recovered/Resolved]
  - Back pain [Recovered/Resolved]
  - Foot fracture [Recovered/Resolved]
  - Drug dose omission [Recovered/Resolved]
  - Influenza like illness [Recovered/Resolved]
  - Dizziness [Recovered/Resolved]
  - Confusional state [Recovered/Resolved]
  - Anxiety [Recovered/Resolved]
  - Pain in extremity [Not Recovered/Not Resolved]
  - Pyrexia [Unknown]
  - Injection site pain [Recovered/Resolved]
